FAERS Safety Report 9867172 (Version 1)
Quarter: 2014Q1

REPORT INFORMATION
  Report Type: Spontaneous
  Country: US (occurrence: None)
  Receive Date: 20140131
  Receipt Date: 20140131
  Transmission Date: 20141002
  Serious: Yes (Death)
  Sender: FDA-Public Use
  Company Number: 2014AP000396

PATIENT
  Age: 47 Year
  Sex: Male

DRUGS (6)
  1. TRAZODONE HYDROCHLORIDE TABLETS [Suspect]
  2. OLANZAPINE [Suspect]
  3. CITALOPRAM [Suspect]
  4. FENTANYL [Suspect]
  5. BENZOTROPINE [Suspect]
  6. HYDROXYZINE [Suspect]

REACTIONS (1)
  - Drug abuse [None]
